FAERS Safety Report 5244301-6 (Version None)
Quarter: 2007Q1

REPORT INFORMATION
  Report Type: 
  Country: None (occurrence: None)
  Receive Date: 20070222
  Receipt Date: 20070213
  Transmission Date: 20070707
  Serious: Yes (Hospitalization, Other)
  Sender: FDA-Public Use
  Company Number: 2007SE00339

PATIENT
  Age: 19780 Day
  Sex: Female
  Weight: 114 kg

DRUGS (9)
  1. BLOPRESS PLUS [Suspect]
     Indication: ESSENTIAL HYPERTENSION
     Dosage: 16 MG CANDESARTAN CILEXETIL; 12,5 MG HCT
     Route: 048
     Dates: start: 20060926, end: 20060929
  2. BLOPRESS PLUS [Suspect]
     Dosage: 16 MG CANDESARTAN CILEXETIL; 12,5 MG HCT
     Route: 048
  3. METFORMIN HCL [Concomitant]
     Indication: DIABETES MELLITUS
     Route: 048
     Dates: start: 20060616, end: 20060929
  4. METFORMIN HCL [Concomitant]
     Route: 048
     Dates: start: 20061003
  5. AMLODIPINE [Concomitant]
     Indication: HYPERTENSION
     Route: 048
     Dates: start: 20060330, end: 20060929
  6. AMLODIPINE [Concomitant]
     Route: 048
     Dates: start: 20061003
  7. METO-SUCCINAT [Concomitant]
     Indication: HYPERTENSION
     Route: 048
     Dates: start: 20060330, end: 20060929
  8. METO-SUCCINAT [Concomitant]
     Route: 048
     Dates: start: 20061003
  9. GEMFI [Concomitant]
     Route: 048

REACTIONS (1)
  - HYPERTENSIVE CRISIS [None]
